FAERS Safety Report 6285661-7 (Version None)
Quarter: 2009Q3

REPORT INFORMATION
  Report Type: 
  Country: None (occurrence: None)
  Receive Date: 20090724
  Receipt Date: 20090710
  Transmission Date: 20100115
  Serious: Yes (Hospitalization)
  Sender: FDA-Public Use
  Company Number: A-NJ2009-26346

PATIENT
  Age: 28 Year
  Sex: Female

DRUGS (18)
  1. TRACLEER [Suspect]
     Indication: PULMONARY HYPERTENSION
     Dosage: 62.5 MG, SINGLE, ORAL
     Route: 048
     Dates: start: 20090709, end: 20090709
  2. CELLCEPT [Concomitant]
  3. FOLIC ACID [Concomitant]
  4. PLAVIX [Concomitant]
  5. PREDNISONE TAB [Concomitant]
  6. AMBEIN (ZOLPIEM TARTRATE) [Concomitant]
  7. CALCIUM (CALCIUM) [Concomitant]
  8. CITALOPRAM HYDROBROMIDE [Concomitant]
  9. COLACE (DOCUSATE SODIUM) [Concomitant]
  10. DOXYCYLINE HYCLATE [Concomitant]
  11. FLOVENT [Concomitant]
  12. KLONOPIN [Concomitant]
  13. NORVASC [Concomitant]
  14. PRILOSEC [Concomitant]
  15. OXYCONTIN [Concomitant]
  16. GABAPENTIN [Concomitant]
  17. PROCARDIA [Concomitant]
  18. LISINOPRIL [Concomitant]

REACTIONS (8)
  - ANAPHYLACTIC REACTION [None]
  - DIZZINESS [None]
  - HYPOAESTHESIA [None]
  - PARAESTHESIA [None]
  - RESPIRATORY FAILURE [None]
  - SENSATION OF FOREIGN BODY [None]
  - THROAT TIGHTNESS [None]
  - TREMOR [None]
